FAERS Safety Report 8356592-3 (Version None)
Quarter: 2012Q2

REPORT INFORMATION
  Report Type: 
  Country: None (occurrence: None)
  Receive Date: 20120514
  Receipt Date: 20120508
  Transmission Date: 20120825
  Serious: Yes (Hospitalization, Other)
  Sender: FDA-Public Use
  Company Number: PHEH2011US03583

PATIENT
  Sex: Female
  Weight: 58.3 kg

DRUGS (6)
  1. MELOXICAM [Concomitant]
  2. KETOROLAC TROMETHAMINE [Concomitant]
  3. EXJADE [Suspect]
     Indication: IRON OVERLOAD
     Dosage: 1250 MG, QD
     Dates: start: 20110301
  4. MULTI-VITAMINS [Concomitant]
     Indication: PLATELET COUNT DECREASED
  5. BACTRIM DS [Concomitant]
  6. DIGOXIN [Concomitant]

REACTIONS (7)
  - PSEUDOMONAS INFECTION [None]
  - ANAEMIA [None]
  - PLATELET COUNT DECREASED [None]
  - ABSCESS [None]
  - WOUND HAEMORRHAGE [None]
  - WHITE BLOOD CELL COUNT DECREASED [None]
  - RED BLOOD CELL COUNT DECREASED [None]
